FAERS Safety Report 14525529 (Version 1)
Quarter: 2018Q1

REPORT INFORMATION
  Report Type: Spontaneous
  Country: US (occurrence: US)
  Receive Date: 20180213
  Receipt Date: 20180213
  Transmission Date: 20180509
  Serious: No
  Sender: FDA-Public Use
  Company Number: US-PERRIGO-17US031332

PATIENT
  Age: 40 Year
  Sex: Female
  Weight: 56.69 kg

DRUGS (3)
  1. BEE VENOM [Concomitant]
     Active Substance: APIS MELLIFERA VENOM
     Indication: ALLERGY TO ARTHROPOD STING
     Dosage: UNKNOWN, MONTHLY
     Route: 065
     Dates: start: 201706
  2. SCOPOLAMINE [Suspect]
     Active Substance: SCOPOLAMINE
     Indication: MOTION SICKNESS
     Dosage: 1 MG, Q 3 DAYS
     Route: 062
     Dates: start: 20171120, end: 20171122
  3. SCOPOLAMINE [Suspect]
     Active Substance: SCOPOLAMINE
     Dosage: 1 MG
     Route: 062
     Dates: start: 20171123, end: 20171124

REACTIONS (1)
  - Vision blurred [Recovered/Resolved]

NARRATIVE: CASE EVENT DATE: 20171122
